FAERS Safety Report 10908353 (Version 1)
Quarter: 2015Q1

REPORT INFORMATION
  Report Type: Spontaneous
  Country: JP (occurrence: None)
  Receive Date: 20150309
  Receipt Date: 20150309
  Transmission Date: 20150721
  Serious: Yes (Other)
  Sender: FDA-Public Use
  Company Number: 2015COV00045

PATIENT
  Age: 78 Year
  Sex: Female

DRUGS (1)
  1. KAYEXALATE [Suspect]
     Active Substance: SODIUM POLYSTYRENE SULFONATE
     Indication: BLOOD POTASSIUM ABNORMAL
     Dates: start: 2005

REACTIONS (2)
  - Large intestine perforation [None]
  - Peritonitis [None]

NARRATIVE: CASE EVENT DATE: 201408
